FAERS Safety Report 20439829 (Version 2)
Quarter: 2022Q3

REPORT INFORMATION
  Report Type: Spontaneous
  Country: US (occurrence: None)
  Receive Date: 20220207
  Receipt Date: 20220811
  Transmission Date: 20221027
  Serious: Yes (Death, Other)
  Sender: FDA-Public Use
  Company Number: 2022A061259

PATIENT
  Age: 60 Year
  Sex: Male
  Weight: 86.2 kg

DRUGS (100)
  1. PRILOSEC [Suspect]
     Active Substance: OMEPRAZOLE MAGNESIUM
     Indication: Gastrooesophageal reflux disease
     Route: 048
     Dates: start: 2001, end: 2020
  2. PRILOSEC [Suspect]
     Active Substance: OMEPRAZOLE MAGNESIUM
     Indication: Gastrooesophageal reflux disease
     Route: 048
     Dates: start: 2001, end: 2020
  3. PRILOSEC [Suspect]
     Active Substance: OMEPRAZOLE MAGNESIUM
     Indication: Gastrooesophageal reflux disease
     Dosage: GENERIC
     Route: 065
     Dates: start: 2008, end: 2020
  4. PRILOSEC [Suspect]
     Active Substance: OMEPRAZOLE MAGNESIUM
     Indication: Gastrooesophageal reflux disease
     Dosage: GENERIC
     Route: 065
     Dates: start: 2008, end: 2020
  5. NEXIUM [Suspect]
     Active Substance: ESOMEPRAZOLE MAGNESIUM
     Indication: Gastrooesophageal reflux disease
     Dosage: GENERIC
     Route: 065
     Dates: start: 2015
  6. NEXIUM [Suspect]
     Active Substance: ESOMEPRAZOLE MAGNESIUM
     Indication: Gastrooesophageal reflux disease
     Dosage: GENERIC
     Route: 065
     Dates: start: 2015
  7. NEXIUM 24HR [Suspect]
     Active Substance: ESOMEPRAZOLE MAGNESIUM
     Indication: Gastrooesophageal reflux disease
     Route: 048
     Dates: start: 2014, end: 2018
  8. NEXIUM 24HR [Suspect]
     Active Substance: ESOMEPRAZOLE MAGNESIUM
     Indication: Gastrooesophageal reflux disease
     Route: 048
     Dates: start: 2014, end: 2018
  9. PREVACID [Suspect]
     Active Substance: LANSOPRAZOLE
     Indication: Gastrooesophageal reflux disease
     Route: 065
     Dates: end: 2010
  10. PREVACID [Suspect]
     Active Substance: LANSOPRAZOLE
     Indication: Gastrooesophageal reflux disease
     Route: 065
     Dates: end: 2010
  11. PROTONIX [Suspect]
     Active Substance: PANTOPRAZOLE SODIUM
     Indication: Gastrooesophageal reflux disease
     Route: 065
     Dates: start: 2012, end: 2020
  12. PROTONIX [Suspect]
     Active Substance: PANTOPRAZOLE SODIUM
     Indication: Gastrooesophageal reflux disease
     Route: 065
     Dates: start: 2012, end: 2020
  13. PROTONIX [Suspect]
     Active Substance: PANTOPRAZOLE SODIUM
     Indication: Gastrooesophageal reflux disease
     Dosage: GENERIC
     Route: 065
     Dates: start: 2014, end: 2020
  14. PROTONIX [Suspect]
     Active Substance: PANTOPRAZOLE SODIUM
     Indication: Gastrooesophageal reflux disease
     Dosage: GENERIC
     Route: 065
     Dates: start: 2014, end: 2020
  15. BUPIVACAINE HYDROCHLORIDE/LIDOCAINE HYDROCHLORIDE/KETOROLAC TROMETHAMI [Concomitant]
     Indication: Pain
     Dates: start: 201009
  16. TORADOL [Concomitant]
     Active Substance: KETOROLAC TROMETHAMINE
     Indication: Pain
     Dates: start: 201009
  17. TRAMADOL [Concomitant]
     Active Substance: TRAMADOL
     Indication: Pain
     Dates: start: 2014, end: 2018
  18. ULTRAM [Concomitant]
     Active Substance: TRAMADOL HYDROCHLORIDE
     Indication: Pain
     Dates: start: 201401
  19. AMOXICILLIN [Concomitant]
     Active Substance: AMOXICILLIN
     Indication: Infection
     Dates: start: 2011, end: 2018
  20. AZITHROMYCIN [Concomitant]
     Active Substance: AZITHROMYCIN
     Indication: Infection
     Dates: start: 2011, end: 2019
  21. CEFAZOLIN [Concomitant]
     Active Substance: CEFAZOLIN
     Indication: Infection
     Dates: start: 201009
  22. ANCEF [Concomitant]
     Active Substance: CEFAZOLIN SODIUM
     Indication: Infection
     Dates: start: 201609
  23. CETRIAXONE [Concomitant]
     Indication: Infection
     Dates: start: 2018, end: 2020
  24. ROCEPHIN [Concomitant]
     Active Substance: CEFTRIAXONE SODIUM
     Indication: Infection
     Dates: start: 201105
  25. CIPROFLOXACIN [Concomitant]
     Active Substance: CIPROFLOXACIN
     Indication: Infection
     Dates: start: 201406
  26. DOXYCYCLINE [Concomitant]
     Active Substance: DOXYCYCLINE
     Indication: Infection
     Dates: start: 201101
  27. DOXYCYCLINE [Concomitant]
     Active Substance: DOXYCYCLINE
     Indication: Infection
     Dates: start: 201703
  28. LEVOFLOXACIN [Concomitant]
     Active Substance: LEVOFLOXACIN
     Indication: Infection
     Dates: start: 2011, end: 2019
  29. LEVAQUIN [Concomitant]
     Active Substance: LEVOFLOXACIN
     Indication: Infection
     Dates: start: 2011, end: 2019
  30. VANCOMYCIN [Concomitant]
     Active Substance: VANCOMYCIN
     Indication: Infection
     Dates: start: 2010
  31. ENALAPRIL [Concomitant]
     Active Substance: ENALAPRIL
     Indication: Hypertension
     Dates: start: 201201
  32. LISINOPRIL [Concomitant]
     Active Substance: LISINOPRIL
     Indication: Hypertension
     Dates: start: 2011, end: 2019
  33. LOSARTAN [Concomitant]
     Active Substance: LOSARTAN
     Indication: Hypertension
     Dates: start: 201406
  34. BUMEX [Concomitant]
     Active Substance: BUMETANIDE
     Indication: Renal disorder
     Dates: start: 202002
  35. HYDROCHLOROTHIAZIDE [Concomitant]
     Active Substance: HYDROCHLOROTHIAZIDE
     Indication: Hypertension
     Dates: start: 200710
  36. ATORVASTATIN [Concomitant]
     Active Substance: ATORVASTATIN
     Indication: Blood cholesterol increased
     Dates: start: 2018
  37. PRAVASTATIN [Concomitant]
     Active Substance: PRAVASTATIN
     Indication: Blood cholesterol increased
     Dates: start: 2012, end: 2018
  38. LIPOSTAT [Concomitant]
     Active Substance: PRAVASTATIN SODIUM
     Indication: Blood cholesterol increased
     Dates: start: 2012, end: 2018
  39. HYDRALAZINE [Concomitant]
     Active Substance: HYDRALAZINE HYDROCHLORIDE
     Indication: Hypertension
     Dates: start: 2012, end: 2019
  40. EPINEPHRINE [Concomitant]
     Active Substance: EPINEPHRINE
     Indication: Hypertension
     Dates: start: 2010
  41. CLOPIDOGREL [Concomitant]
     Active Substance: CLOPIDOGREL BISULFATE
     Indication: Cardiac disorder
     Dates: start: 2012
  42. CLOPIDOGREL [Concomitant]
     Active Substance: CLOPIDOGREL BISULFATE
     Indication: Cardiac disorder
     Dates: start: 2016
  43. PLAVIX [Concomitant]
     Active Substance: CLOPIDOGREL BISULFATE
     Indication: Cardiac disorder
     Dates: start: 2012, end: 2020
  44. ACETAMINOPHEN [Concomitant]
     Active Substance: ACETAMINOPHEN
     Indication: Pain
     Dosage: AS NEEDED
  45. ASPIRIN [Concomitant]
     Active Substance: ASPIRIN
     Indication: Pain
     Dosage: AS NEEDED
  46. IBUPROFEN [Concomitant]
     Active Substance: IBUPROFEN
     Indication: Pain
     Dosage: AS NEEDED
  47. FAMOTIDINE [Concomitant]
     Active Substance: FAMOTIDINE
     Dates: start: 2010, end: 2017
  48. RANITIDINE [Concomitant]
     Active Substance: RANITIDINE
     Dates: start: 201709
  49. MYLANTA [Concomitant]
     Active Substance: ALUMINUM HYDROXIDE\DIMETHICONE\MAGNESIUM HYDROXIDE
     Dates: start: 2010, end: 2017
  50. SODIUM BICARBONATE [Concomitant]
     Active Substance: SODIUM BICARBONATE
     Dates: start: 2010, end: 2017
  51. CALCIUM CARBONATE\ERGOCALCIFEROL\RETINOL [Concomitant]
     Active Substance: CALCIUM CARBONATE\ERGOCALCIFEROL\RETINOL
     Dates: start: 2010, end: 2017
  52. FINASTERIDE [Concomitant]
     Active Substance: FINASTERIDE
     Dates: start: 2010, end: 2017
  53. CEPHALEXIN [Concomitant]
     Active Substance: CEPHALEXIN
     Dates: start: 2010, end: 2017
  54. CLINDAMYCIN [Concomitant]
     Active Substance: CLINDAMYCIN
     Dates: start: 2010, end: 2017
  55. OXYCODONE [Concomitant]
     Active Substance: OXYCODONE
     Dates: start: 2010, end: 2017
  56. LEVETIRACETAM [Concomitant]
     Active Substance: LEVETIRACETAM
     Dates: start: 2010, end: 2017
  57. CARVEDILOL [Concomitant]
     Active Substance: CARVEDILOL
     Dates: start: 2010, end: 2017
  58. SUCRALFATE [Concomitant]
     Active Substance: SUCRALFATE
     Dates: start: 2010, end: 2017
  59. CLONAZEPAM [Concomitant]
     Active Substance: CLONAZEPAM
     Dates: start: 2010, end: 2017
  60. MEGESTROL [Concomitant]
     Active Substance: MEGESTROL
     Dates: start: 2010, end: 2017
  61. COLCHICINE [Concomitant]
     Active Substance: COLCHICINE
     Dates: start: 2010, end: 2017
  62. IPRATROPIUM [Concomitant]
     Active Substance: IPRATROPIUM
     Dates: start: 2010, end: 2017
  63. FLUTICASONE [Concomitant]
     Active Substance: FLUTICASONE
     Dates: start: 2010, end: 2017
  64. PROMETHAZINE [Concomitant]
     Active Substance: PROMETHAZINE HYDROCHLORIDE
     Dates: start: 2010, end: 2017
  65. BUDESONIDE [Concomitant]
     Active Substance: BUDESONIDE
     Dates: start: 2010, end: 2017
  66. ALPRAZOLAM [Concomitant]
     Active Substance: ALPRAZOLAM
     Dates: start: 2010, end: 2017
  67. ALBUTEROL [Concomitant]
     Active Substance: ALBUTEROL
     Dates: start: 2010, end: 2017
  68. PROCHLORPERAZINE [Concomitant]
     Active Substance: PROCHLORPERAZINE
     Dates: start: 2010, end: 2017
  69. GUAIFENESIN [Concomitant]
     Active Substance: GUAIFENESIN
     Dates: start: 2010, end: 2017
  70. PREDNISONE [Concomitant]
     Active Substance: PREDNISONE
     Dates: start: 2010, end: 2017
  71. AMLODIPINE [Concomitant]
     Active Substance: AMLODIPINE BESYLATE
     Dates: start: 2010, end: 2017
  72. COMBIVENT [Concomitant]
     Active Substance: ALBUTEROL SULFATE\IPRATROPIUM BROMIDE
     Dates: start: 2010, end: 2017
  73. OSELTAMIVIR [Concomitant]
     Active Substance: OSELTAMIVIR
     Dates: start: 2010, end: 2017
  74. ZOSTAVAX [Concomitant]
     Active Substance: VARICELLA-ZOSTER VIRUS STRAIN OKA/MERCK LIVE ANTIGEN
     Dates: start: 2010, end: 2017
  75. ZOLPIDEM [Concomitant]
     Active Substance: ZOLPIDEM TARTRATE
     Dates: start: 2010, end: 2017
  76. ANORO ELLIPTA [Concomitant]
     Active Substance: UMECLIDINIUM BROMIDE\VILANTEROL TRIFENATATE
     Dates: start: 2010, end: 2017
  77. CARAFATE [Concomitant]
     Active Substance: SUCRALFATE
     Dates: start: 2010, end: 2017
  78. MUPIROCIN [Concomitant]
     Active Substance: MUPIROCIN
     Dates: start: 2010, end: 2017
  79. BACLOFEN [Concomitant]
     Active Substance: BACLOFEN
     Dates: start: 2010, end: 2017
  80. BUTALBITAL [Concomitant]
     Active Substance: BUTALBITAL
     Dates: start: 2010, end: 2017
  81. BENZONATATE [Concomitant]
     Active Substance: BENZONATATE
     Dates: start: 2010, end: 2017
  82. RENVELA [Concomitant]
     Active Substance: SEVELAMER CARBONATE
     Dates: start: 2010, end: 2017
  83. VIAGRA [Concomitant]
     Active Substance: SILDENAFIL CITRATE
     Dates: start: 2010, end: 2017
  84. ATENOLOL [Concomitant]
     Active Substance: ATENOLOL
     Dates: start: 2010, end: 2017
  85. FERROUS SULFATE [Concomitant]
     Active Substance: FERROUS SULFATE
     Dates: start: 2010, end: 2017
  86. FLEXERIL [Concomitant]
     Active Substance: CYCLOBENZAPRINE HYDROCHLORIDE
     Dates: start: 2010, end: 2017
  87. KLONOPIN [Concomitant]
     Active Substance: CLONAZEPAM
     Dates: start: 2010, end: 2017
  88. APRESOLINE HYDROCHLORIDE [Concomitant]
     Active Substance: HYDRALAZINE HYDROCHLORIDE
     Dates: start: 2010, end: 2017
  89. ELAVIL [Concomitant]
     Active Substance: AMITRIPTYLINE HYDROCHLORIDE
     Dates: start: 2010, end: 2017
  90. MINOXIDIL [Concomitant]
     Active Substance: MINOXIDIL
     Dates: start: 2010, end: 2017
  91. KEPPRA [Concomitant]
     Active Substance: LEVETIRACETAM
     Dates: start: 2010, end: 2017
  92. IMDUR [Concomitant]
     Active Substance: ISOSORBIDE MONONITRATE
     Dates: start: 2010, end: 2017
  93. SCOPOLAMINE [Concomitant]
     Active Substance: SCOPOLAMINE
     Dates: start: 2010, end: 2017
  94. LORTAB [Concomitant]
     Active Substance: ACETAMINOPHEN\HYDROCODONE BITARTRATE
     Dates: start: 2010, end: 2017
  95. SEVELAMAR [Concomitant]
     Dates: start: 2010, end: 2017
  96. PRAVACHOL [Concomitant]
     Active Substance: PRAVASTATIN SODIUM
     Dates: start: 2010, end: 2017
  97. RAPAFLO [Concomitant]
     Active Substance: SILODOSIN
     Dates: start: 2010, end: 2017
  98. FLUPENTIXOL/NORTRIPTYLINE [Concomitant]
     Dates: start: 2010, end: 2017
  99. PAMELOR [Concomitant]
     Active Substance: NORTRIPTYLINE HYDROCHLORIDE
     Dates: start: 2010, end: 2017
  100. BUSPAR [Concomitant]
     Active Substance: BUSPIRONE HYDROCHLORIDE
     Dates: start: 2010, end: 2017

REACTIONS (4)
  - End stage renal disease [Fatal]
  - Chronic kidney disease [Not Recovered/Not Resolved]
  - Renal failure [Unknown]
  - Nephrogenic anaemia [Unknown]

NARRATIVE: CASE EVENT DATE: 20090101
